FAERS Safety Report 6574520-8 (Version None)
Quarter: 2010Q1

REPORT INFORMATION
  Report Type: 
  Country: None (occurrence: None)
  Receive Date: 20100209
  Receipt Date: 20091106
  Transmission Date: 20100710
  Serious: No
  Sender: FDA-Public Use
  Company Number: A0815818A

PATIENT
  Age: 31 Year
  Sex: Female

DRUGS (2)
  1. PAXIL [Suspect]
     Indication: DEPRESSION
     Dosage: 10MG PER DAY
     Route: 048
     Dates: start: 20090901
  2. DIAZEPAM [Concomitant]

REACTIONS (1)
  - WITHDRAWAL SYNDROME [None]
